FAERS Safety Report 20207202 (Version 1)
Quarter: 2021Q4

REPORT INFORMATION
  Report Type: Spontaneous
  Country: SE (occurrence: None)
  Receive Date: 20211220
  Receipt Date: 20211220
  Transmission Date: 20220303
  Serious: Yes (Life-Threatening)
  Sender: FDA-Public Use
  Company Number: 2021A882245

PATIENT
  Age: 15 Year
  Sex: Male
  Weight: 60 kg

DRUGS (4)
  1. LOSEC [Suspect]
     Active Substance: OMEPRAZOLE
     Route: 048
     Dates: start: 20211201, end: 20211210
  2. TEGRETOL [Concomitant]
     Active Substance: CARBAMAZEPINE
     Dosage: 200.0MG UNKNOWN
  3. SERTRALINE HYDROCHLORIDE [Concomitant]
     Active Substance: SERTRALINE HYDROCHLORIDE
     Dosage: 50.0MG UNKNOWN
  4. NIMOTOP [Concomitant]
     Active Substance: NIMODIPINE
     Dosage: 30.0MG UNKNOWN

REACTIONS (5)
  - Irritability [Unknown]
  - Pallor [Unknown]
  - Cold sweat [Unknown]
  - Tremor [Unknown]
  - Confusional state [Unknown]

NARRATIVE: CASE EVENT DATE: 20211201
